FAERS Safety Report 7851679-3 (Version None)
Quarter: 2011Q4

REPORT INFORMATION
  Report Type: 
  Country: None (occurrence: None)
  Receive Date: 20111026
  Receipt Date: 20111020
  Transmission Date: 20120403
  Serious: Yes (Death, Other)
  Sender: FDA-Public Use
  Company Number: PHHY2011MX93284

PATIENT
  Sex: Female

DRUGS (2)
  1. GLYBURIDE [Concomitant]
     Indication: DIABETES MELLITUS
     Dates: start: 20110115
  2. DIOVAN [Suspect]
     Indication: HYPERTENSION
     Dosage: 1 DF X 80 MG DAILY
     Dates: start: 20070115

REACTIONS (3)
  - CARDIAC FAILURE [None]
  - FALL [None]
  - DEATH [None]
